FAERS Safety Report 25434246 (Version 1)
Quarter: 2025Q2

REPORT INFORMATION
  Report Type: Spontaneous
  Country: US (occurrence: US)
  Receive Date: 20250613
  Receipt Date: 20250613
  Transmission Date: 20250717
  Serious: Yes (Death, Hospitalization, Other)
  Sender: UNITED THERAPEUTICS
  Company Number: US-UNITED THERAPEUTICS-UNT-2025-020010

PATIENT
  Age: 54 Year
  Sex: Male

DRUGS (6)
  1. REMODULIN [Suspect]
     Active Substance: TREPROSTINIL
     Indication: Pulmonary hypertension
  2. EPOPROSTENOL [Suspect]
     Active Substance: EPOPROSTENOL
     Indication: Pulmonary hypertension
     Route: 041
  3. EPOPROSTENOL [Suspect]
     Active Substance: EPOPROSTENOL
     Route: 041
  4. EPOPROSTENOL [Suspect]
     Active Substance: EPOPROSTENOL
     Route: 041
  5. WARFARIN [Concomitant]
     Active Substance: WARFARIN
     Indication: Product used for unknown indication
  6. SIMVASTATIN [Concomitant]
     Active Substance: SIMVASTATIN
     Indication: Pulmonary hypertension

REACTIONS (11)
  - Thoracic haemorrhage [Fatal]
  - Pulmonary hypertension [Fatal]
  - Carcinoid tumour pulmonary [Unknown]
  - Asthenia [Unknown]
  - Cardiac failure high output [Recovering/Resolving]
  - Pulmonary hypertension [Unknown]
  - Device related infection [Unknown]
  - Dyspnoea [Unknown]
  - Infusion site discomfort [Unknown]
  - Off label use [Unknown]
  - Drug ineffective [Unknown]
